FAERS Safety Report 18744650 (Version 2)
Quarter: 2021Q1

REPORT INFORMATION
  Report Type: Spontaneous
  Country: US (occurrence: US)
  Receive Date: 20210115
  Receipt Date: 20210207
  Transmission Date: 20210419
  Serious: No
  Sender: FDA-Public Use
  Company Number: US-ASTRAZENECA-2020SF70377

PATIENT
  Age: 13467 Day
  Sex: Female
  Weight: 56.7 kg

DRUGS (1)
  1. SYMBICORT [Suspect]
     Active Substance: BUDESONIDE\FORMOTEROL FUMARATE DIHYDRATE
     Indication: ASTHMA
     Dosage: SYMBICORT 160/4.5MCG, TWO PUFFS IN THE MORNING AND TWO AT NIGHT
     Route: 055
     Dates: start: 202003

REACTIONS (5)
  - Oropharyngeal pain [Unknown]
  - Device issue [Unknown]
  - Throat irritation [Unknown]
  - Lung disorder [Unknown]
  - Dysphonia [Unknown]

NARRATIVE: CASE EVENT DATE: 20201216
